FAERS Safety Report 14994727 (Version 1)
Quarter: 2018Q2

REPORT INFORMATION
  Report Type: Spontaneous
  Country: TH (occurrence: TH)
  Receive Date: 20180611
  Receipt Date: 20180611
  Transmission Date: 20180711
  Serious: Yes (Hospitalization, Other)
  Sender: FDA-Public Use
  Company Number: PHHY2018TH012830

PATIENT
  Age: 95 Year
  Sex: Female

DRUGS (2)
  1. RIVASTIGMINE. [Suspect]
     Active Substance: RIVASTIGMINE
     Indication: PRODUCT USED FOR UNKNOWN INDICATION
     Dosage: 1.5 MG, BID
     Route: 048
     Dates: start: 201506, end: 201508
  2. RIVASTIGMINE. [Suspect]
     Active Substance: RIVASTIGMINE
     Dosage: 3 MG, BID
     Route: 048
     Dates: start: 201510, end: 201601

REACTIONS (7)
  - Weight decreased [Unknown]
  - Immune thrombocytopenic purpura [Unknown]
  - Drug eruption [Recovered/Resolved]
  - Pneumonia [Unknown]
  - Delirium [Unknown]
  - Dementia [Unknown]
  - Appetite disorder [Unknown]

NARRATIVE: CASE EVENT DATE: 201507
